FAERS Safety Report 6260070-5 (Version None)
Quarter: 2009Q3

REPORT INFORMATION
  Report Type: 
  Country: None (occurrence: None)
  Receive Date: 20090708
  Receipt Date: 20090702
  Transmission Date: 20100115
  Serious: Yes (Other)
  Sender: FDA-Public Use
  Company Number: US-BAYER-200925333NA

PATIENT
  Age: 48 Year
  Sex: Female
  Weight: 71 kg

DRUGS (8)
  1. MIRENA [Suspect]
     Indication: MENORRHAGIA
     Route: 015
     Dates: start: 20080506, end: 20090702
  2. FLEXERIL [Concomitant]
  3. XANAX [Concomitant]
  4. PROVIGIL [Concomitant]
  5. TOPAMAX [Concomitant]
  6. NORCO [Concomitant]
  7. IMITREX [Concomitant]
  8. REBIF [Concomitant]

REACTIONS (3)
  - AMENORRHOEA [None]
  - IUCD COMPLICATION [None]
  - IUD MIGRATION [None]
